FAERS Safety Report 20207361 (Version 2)
Quarter: 2022Q1

REPORT INFORMATION
  Report Type: Spontaneous
  Country: IT (occurrence: IT)
  Receive Date: 20211220
  Receipt Date: 20220204
  Transmission Date: 20220423
  Serious: Yes (Other)
  Sender: FDA-Public Use
  Company Number: None

PATIENT
  Age: 75 Year
  Sex: Female

DRUGS (5)
  1. IBRANCE [Suspect]
     Active Substance: PALBOCICLIB
     Indication: Breast cancer
     Dosage: 125 MG, ALTERNATE DAY
     Route: 048
     Dates: start: 20211008, end: 20211119
  2. ZETIA [Concomitant]
     Active Substance: EZETIMIBE
     Indication: Diabetes mellitus
     Route: 048
  3. SITAGLIPTIN PHOSPHATE [Concomitant]
     Active Substance: SITAGLIPTIN PHOSPHATE
     Indication: Diabetes mellitus
     Dosage: 50 MG
     Route: 048
  4. DRAMION [GLICLAZIDE] [Concomitant]
     Indication: Diabetes mellitus
     Dosage: 60 MG
     Route: 048
  5. LETROZOLE [Concomitant]
     Active Substance: LETROZOLE
     Indication: Breast cancer
     Dosage: 2.5 MG
     Route: 048
     Dates: start: 20211008, end: 20211019

REACTIONS (4)
  - Hypercreatinaemia [Recovered/Resolved with Sequelae]
  - Hypokalaemia [Recovered/Resolved with Sequelae]
  - Off label use [Unknown]
  - Product use issue [Unknown]

NARRATIVE: CASE EVENT DATE: 20211019
